FAERS Safety Report 21913513 (Version 1)
Quarter: 2023Q1

REPORT INFORMATION
  Report Type: Spontaneous
  Country: CN (occurrence: CN)
  Receive Date: 20230125
  Receipt Date: 20230125
  Transmission Date: 20230417
  Serious: Yes (Other)
  Sender: FDA-Public Use
  Company Number: None

PATIENT
  Age: 60 Year
  Sex: Female
  Weight: 51 kg

DRUGS (16)
  1. CYCLOPHOSPHAMIDE [Suspect]
     Active Substance: CYCLOPHOSPHAMIDE
     Indication: Invasive breast carcinoma
     Dosage: AT 8:31, 800 MG, QD, DILUTED WITH 0.9% SODIUM CHLORIDE 100 ML, THIRD CHEMOTHERAPY WITH EC-T REGIMEN
     Route: 041
     Dates: start: 20221225, end: 20221225
  2. CYCLOPHOSPHAMIDE [Suspect]
     Active Substance: CYCLOPHOSPHAMIDE
     Indication: Chemotherapy
  3. SODIUM CHLORIDE [Suspect]
     Active Substance: SODIUM CHLORIDE
     Indication: Medication dilution
     Dosage: AT 8:31, 100ML, QD, (DOSAGE FORM: INJECTION) USED TO DILUTE EPIRUBICIN HYDROCHLORIDE 135MG, THIRD CH
     Route: 041
     Dates: start: 20221225, end: 20221225
  4. EPIRUBICIN [Suspect]
     Active Substance: EPIRUBICIN
     Indication: Invasive breast carcinoma
     Dosage: AT 8:31, 135MG, QD, DILUTED WITH 0.9% SODIUM CHLORIDE 100 ML, THIRD CHEMOTHERAPY WITH EC-T REGIMEN
     Route: 041
     Dates: start: 20221225, end: 20221225
  5. EPIRUBICIN [Suspect]
     Active Substance: EPIRUBICIN
     Indication: Chemotherapy
  6. SODIUM CHLORIDE [Suspect]
     Active Substance: SODIUM CHLORIDE
     Indication: Invasive breast carcinoma
     Dosage: AT 8:31, 100ML, QD, USED TO DILUTE CYCLOPHOSPHAMIDE 800 MG, THIRD CHEMOTHERAPY WITH EC-T REGIMEN
     Route: 041
     Dates: start: 20221225, end: 20221225
  7. SODIUM CHLORIDE [Suspect]
     Active Substance: SODIUM CHLORIDE
     Indication: Chemotherapy
  8. TAXOTERE [Suspect]
     Active Substance: DOCETAXEL
     Indication: Invasive breast carcinoma
     Dosage: UNK
     Route: 065
     Dates: start: 20221225
  9. TAXOTERE [Suspect]
     Active Substance: DOCETAXEL
     Indication: Chemotherapy
  10. TROPISETRON [Concomitant]
     Active Substance: TROPISETRON
     Indication: Prophylaxis of nausea and vomiting
     Dosage: 5 MG, DILUTED WITH 0.9% SODIUM CHLORIDE 5 ML
     Route: 065
     Dates: start: 20221225
  11. TROPISETRON [Concomitant]
     Active Substance: TROPISETRON
     Dosage: 5 MG DILUTED WITH 0.9% SODIUM CHLORIDE 5ML (AFTER CHEMOTHERAPY)
     Route: 042
     Dates: start: 20221225
  12. SODIUM CHLORIDE [Concomitant]
     Active Substance: SODIUM CHLORIDE
     Indication: Medication dilution
     Dosage: 5 ML  USED TO DILUTE TROPISETRON INJECTION 5 MG, AT 8:03 HRS
     Dates: start: 20221225
  13. SODIUM CHLORIDE [Concomitant]
     Active Substance: SODIUM CHLORIDE
     Dosage: 100 ML USED TO DILUTE OMEPRAZOLE SODIUM FOR INJECTION 40 MG AT 8:03 HRS
     Dates: start: 20221225
  14. SODIUM CHLORIDE [Concomitant]
     Active Substance: SODIUM CHLORIDE
     Dosage: 5ML USED TO DILUTE TROPISETRON INJECTION 5MG (AFTER CHEMOTHERAPY)
     Dates: start: 20221225
  15. DEXAMETHASONE [Concomitant]
     Active Substance: DEXAMETHASONE
     Indication: Prophylaxis of nausea and vomiting
     Dosage: 5 MG
     Route: 042
     Dates: start: 20221225
  16. OMEPRAZOLE SODIUM [Concomitant]
     Active Substance: OMEPRAZOLE SODIUM
     Indication: Prophylaxis
     Dosage: 40 MG, DILUTED WITH 0.9% SODIUM CHLORIDE 100 ML
     Route: 065
     Dates: start: 20221225

REACTIONS (8)
  - White blood cell count decreased [Recovering/Resolving]
  - Neutrophil count decreased [Recovering/Resolving]
  - Nausea [Recovering/Resolving]
  - Vomiting [Recovering/Resolving]
  - SARS-CoV-2 test positive [Unknown]
  - Rhinorrhoea [Unknown]
  - Nasal obstruction [Unknown]
  - Pyrexia [Recovering/Resolving]

NARRATIVE: CASE EVENT DATE: 20221225
